FAERS Safety Report 4661370-2 (Version None)
Quarter: 2005Q2

REPORT INFORMATION
  Report Type: 
  Country: None (occurrence: None)
  Receive Date: 20050512
  Receipt Date: 20050505
  Transmission Date: 20051028
  Serious: Yes (Life-Threatening, Other)
  Sender: FDA-Public Use
  Company Number: 05-05-0767

PATIENT
  Age: 35 Year
  Sex: Male
  Weight: 80 kg

DRUGS (7)
  1. FUROSEMIDE [Suspect]
     Indication: OEDEMA
     Dosage: 80MG OD ORAL
     Route: 048
     Dates: start: 20050101, end: 20050203
  2. SPIRONOLACTONE [Suspect]
     Indication: OEDEMA
     Dosage: ORAL
     Route: 048
     Dates: start: 20050101, end: 20050203
  3. OMEPRAZOLE [Concomitant]
  4. BUMETANIDE [Concomitant]
  5. ERYTHROMYCIN [Concomitant]
  6. CO-CODAMOL [Concomitant]
  7. THIAMINE [Concomitant]

REACTIONS (5)
  - ALCOHOL USE [None]
  - AZOTAEMIA [None]
  - HEPATITIS [None]
  - HEPATORENAL FAILURE [None]
  - STEVENS-JOHNSON SYNDROME [None]
